FAERS Safety Report 6655344-X (Version None)
Quarter: 2010Q1

REPORT INFORMATION
  Report Type: 
  Country: None (occurrence: None)
  Receive Date: 20100329
  Receipt Date: 20100316
  Transmission Date: 20100710
  Serious: Yes (Other)
  Sender: FDA-Public Use
  Company Number: PHHY2010JP03758

PATIENT
  Sex: Female

DRUGS (1)
  1. NEORAL [Suspect]
     Indication: SKIN DISORDER
     Dosage: 100 MG DAILY
     Route: 048

REACTIONS (1)
  - CYSTITIS HAEMORRHAGIC [None]
